FAERS Safety Report 5868847-2 (Version None)
Quarter: 2008Q3

REPORT INFORMATION
  Report Type: 
  Country: None (occurrence: None)
  Receive Date: 20080903
  Receipt Date: 20080825
  Transmission Date: 20090109
  Serious: Yes (Hospitalization)
  Sender: FDA-Public Use
  Company Number: US-JNJFOC-20080806133

PATIENT
  Sex: Female
  Weight: 40.82 kg

DRUGS (8)
  1. DURAGESIC-100 [Suspect]
     Route: 062
  2. DURAGESIC-100 [Suspect]
     Route: 062
  3. DURAGESIC-100 [Suspect]
     Dosage: STOP DATE: JAN-2007
     Route: 062
  4. DURAGESIC-100 [Suspect]
     Indication: INTERVERTEBRAL DISC DEGENERATION
     Route: 062
  5. PREVACID [Concomitant]
     Indication: GASTROOESOPHAGEAL REFLUX DISEASE
     Route: 048
  6. KLONOPIN [Concomitant]
     Indication: ANXIETY
     Route: 048
  7. FIORICET [Concomitant]
     Indication: HEADACHE
     Route: 048
  8. RISTEROL [Concomitant]
     Indication: SLEEP DISORDER
     Route: 048

REACTIONS (8)
  - AMNESIA [None]
  - CEREBROVASCULAR ACCIDENT [None]
  - CONSTIPATION [None]
  - CONVULSION [None]
  - DIARRHOEA [None]
  - MYOCARDIAL INFARCTION [None]
  - PHARMACEUTICAL PRODUCT COMPLAINT [None]
  - TREATMENT NONCOMPLIANCE [None]
